FAERS Safety Report 15202764 (Version 1)
Quarter: 2018Q4

REPORT INFORMATION
  Report Type: Spontaneous
  Country: US (occurrence: US)
  Receive Date: 20180726
  Receipt Date: 20180726
  Transmission Date: 20190204
  Serious: Yes (Hospitalization, Other)
  Sender: FDA-Public Use
  Company Number: US-IMPAX LABORATORIES, INC-2018-IPXL-02446

PATIENT
  Age: 43 Year
  Sex: Female

DRUGS (2)
  1. CARVEDILOL PHOSPHATE EXTENDED-RELEASE [Suspect]
     Active Substance: CARVEDILOL PHOSPHATE
     Indication: OVERDOSE
     Dosage: 20 TABLETS
     Route: 048
  2. AMLODIPINE [Suspect]
     Active Substance: AMLODIPINE BESYLATE
     Indication: INTENTIONAL OVERDOSE
     Dosage: 20 TABLETS
     Route: 048

REACTIONS (3)
  - Overdose [Recovered/Resolved]
  - Metabolic acidosis [Recovered/Resolved]
  - Shock [Recovered/Resolved]
